FAERS Safety Report 5972125-0 (Version None)
Quarter: 2008Q4

REPORT INFORMATION
  Report Type: 
  Country: None (occurrence: None)
  Receive Date: 20081201
  Receipt Date: 20080702
  Transmission Date: 20090506
  Serious: No
  Sender: FDA-Public Use
  Company Number: US-TEVA-174311USA

PATIENT
  Sex: Female

DRUGS (2)
  1. SALBUTAMOL SULFATE INHALATION, 0.09 MG [Suspect]
     Indication: ASTHMA
     Dosage: 1 PUFF IN THE AM
     Route: 055
     Dates: start: 20080220, end: 20080301
  2. HYZAAR [Concomitant]
     Indication: BLOOD PRESSURE
     Route: 048

REACTIONS (5)
  - ASTHENIA [None]
  - FEELING ABNORMAL [None]
  - GAIT DISTURBANCE [None]
  - HEART RATE IRREGULAR [None]
  - NAUSEA [None]
